FAERS Safety Report 7504412-9 (Version None)
Quarter: 2011Q2

REPORT INFORMATION
  Report Type: 
  Country: None (occurrence: None)
  Receive Date: 20110525
  Receipt Date: 20110516
  Transmission Date: 20111010
  Serious: Yes (Hospitalization, Other)
  Sender: FDA-Public Use
  Company Number: GB-ELI_LILLY_AND_COMPANY-GB201105004581

PATIENT
  Sex: Male

DRUGS (2)
  1. LANTUS [Concomitant]
     Dosage: UNK
  2. HUMALOG MIX 75/25 [Suspect]

REACTIONS (3)
  - SURGERY [None]
  - POSTOPERATIVE WOUND COMPLICATION [None]
  - ANKLE FRACTURE [None]
